FAERS Safety Report 18936341 (Version 1)
Quarter: 2021Q1

REPORT INFORMATION
  Report Type: Spontaneous
  Country: CN (occurrence: CN)
  Receive Date: 20210224
  Receipt Date: 20210224
  Transmission Date: 20210420
  Serious: Yes (Other)
  Sender: FDA-Public Use
  Company Number: CN-PFIZER INC-2021154345

PATIENT
  Age: 72 Year
  Sex: Male
  Weight: 74 kg

DRUGS (5)
  1. VFEND [Suspect]
     Active Substance: VORICONAZOLE
     Dosage: 100 MG, 2X/DAY
     Route: 041
     Dates: start: 20210206, end: 20210209
  2. TYGACIL [Suspect]
     Active Substance: TIGECYCLINE
     Indication: SYMPTOMATIC TREATMENT
     Dosage: 50 MG, 2X/DAY
     Route: 041
     Dates: start: 20210131, end: 20210209
  3. ZETAN [Suspect]
     Active Substance: TIGECYCLINE
     Dosage: 100 MG, 2X/DAY
     Route: 041
     Dates: start: 20210112, end: 20210114
  4. VFEND [Suspect]
     Active Substance: VORICONAZOLE
     Indication: SYMPTOMATIC TREATMENT
     Dosage: 200 MG, 2X/DAY
     Route: 041
     Dates: start: 20210128, end: 20210205
  5. ZETAN [Suspect]
     Active Substance: TIGECYCLINE
     Indication: SYMPTOMATIC TREATMENT
     Dosage: 50 MG, 2X/DAY
     Route: 041
     Dates: start: 20210105, end: 20210111

REACTIONS (6)
  - Chronic kidney disease [Unknown]
  - Decreased appetite [Not Recovered/Not Resolved]
  - Hypertension [Unknown]
  - Fatigue [Not Recovered/Not Resolved]
  - Electrolyte imbalance [Not Recovered/Not Resolved]
  - Hepatic failure [Not Recovered/Not Resolved]

NARRATIVE: CASE EVENT DATE: 20210131
